FAERS Safety Report 9760388 (Version 2)
Quarter: 2013Q4

REPORT INFORMATION
  Report Type: Spontaneous
  Country: US (occurrence: US)
  Receive Date: 20131216
  Receipt Date: 20131216
  Transmission Date: 20140711
  Serious: No
  Sender: FDA-Public Use
  Company Number: US-GILEAD-2010-0028936

PATIENT
  Sex: Female
  Weight: 81.65 kg

DRUGS (17)
  1. LETAIRIS [Suspect]
     Indication: PULMONARY ARTERIAL HYPERTENSION
     Route: 048
     Dates: start: 20100326
  2. LASIX [Concomitant]
  3. DIAZEPAM [Concomitant]
  4. OMEPRAZOLE [Concomitant]
  5. LEVOTHYROXINE [Concomitant]
  6. LORTAB [Concomitant]
  7. ADCIRCA [Concomitant]
  8. OXYGEN [Concomitant]
  9. REVATIO [Concomitant]
  10. NADOLOL [Concomitant]
  11. PHENADOZ [Concomitant]
  12. DILTIAZEM-D5W [Concomitant]
  13. AMBIEN CR [Concomitant]
  14. LANTUS [Concomitant]
  15. NOVOLOG [Concomitant]
  16. TYLENOL PM EX-STR [Concomitant]
  17. ALDACTONE [Concomitant]

REACTIONS (2)
  - Unevaluable event [Unknown]
  - Swelling [Unknown]
